FAERS Safety Report 8052689-6 (Version None)
Quarter: 2012Q1

REPORT INFORMATION
  Report Type: 
  Country: None (occurrence: None)
  Receive Date: 20120118
  Receipt Date: 20120118
  Transmission Date: 20120608
  Serious: Yes (Hospitalization)
  Sender: FDA-Public Use
  Company Number: None

PATIENT
  Sex: Male
  Weight: 110.22 kg

DRUGS (9)
  1. LISINOPRIL [Concomitant]
     Route: 048
  2. PRAVASTATIN [Concomitant]
     Route: 048
  3. TERAZOSIN HCL [Concomitant]
     Route: 048
  4. DARAPLADIB [Concomitant]
  5. GLIPIZIDE [Concomitant]
     Route: 048
  6. TOPROL-XL [Concomitant]
     Route: 048
  7. KOMBIGLYZE XR [Suspect]
     Dosage: 2 TABS
     Route: 048
     Dates: start: 20111121, end: 20111226
  8. PLAVIX [Concomitant]
     Route: 048
  9. ASPIRIN [Concomitant]
     Route: 048

REACTIONS (3)
  - URINARY TRACT INFECTION [None]
  - ACUTE PRERENAL FAILURE [None]
  - RENAL FAILURE ACUTE [None]
